FAERS Safety Report 4512504-1 (Version None)
Quarter: 2004Q4

REPORT INFORMATION
  Report Type: 
  Country: None (occurrence: None)
  Receive Date: 20041124
  Receipt Date: 20040902
  Transmission Date: 20050328
  Serious: Yes (Hospitalization)
  Sender: FDA-Public Use
  Company Number: 204090

PATIENT
  Age: 53 Year
  Sex: Female

DRUGS (12)
  1. AVONEX [Suspect]
     Indication: MULTIPLE SCLEROSIS
     Dosage: SEE IMAGE
     Route: 030
     Dates: start: 19980101
  2. NOVANTRONE [Concomitant]
  3. BACLOFEN [Concomitant]
  4. AMBIEN [Concomitant]
  5. PAXIL [Concomitant]
  6. NEURONTIN [Concomitant]
  7. PROVIGIL [Concomitant]
  8. MULTIVITAMIN [Concomitant]
  9. VALERIAN ROOT [Concomitant]
  10. COMPAZINE [Concomitant]
  11. RELAFEN [Concomitant]
  12. ANZEMET [Concomitant]

REACTIONS (19)
  - ASTHENIA [None]
  - ATAXIA [None]
  - CHILLS [None]
  - CONDITION AGGRAVATED [None]
  - DEPRESSION [None]
  - DIFFICULTY IN WALKING [None]
  - FAECAL INCONTINENCE [None]
  - FATIGUE [None]
  - HAEMOGLOBIN DECREASED [None]
  - LEUKOPENIA [None]
  - LOOSE STOOLS [None]
  - MULTIPLE SCLEROSIS [None]
  - NAUSEA [None]
  - NEUTROPHIL COUNT DECREASED [None]
  - PLATELET COUNT DECREASED [None]
  - PYREXIA [None]
  - RESTLESS LEGS SYNDROME [None]
  - SECONDARY PROGRESSIVE MULTIPLE SCLEROSIS [None]
  - URINARY INCONTINENCE [None]
